FAERS Safety Report 23133972 (Version 2)
Quarter: 2023Q4

REPORT INFORMATION
  Report Type: Spontaneous
  Country: PL (occurrence: PL)
  Receive Date: 20231101
  Receipt Date: 20231103
  Transmission Date: 20240109
  Serious: Yes (Hospitalization, Other)
  Sender: FDA-Public Use
  Company Number: PL-002147023-NVSC2023PL231664

PATIENT
  Age: 54 Year
  Sex: Female

DRUGS (1)
  1. CYCLOSPORINE [Suspect]
     Active Substance: CYCLOSPORINE
     Indication: Product used for unknown indication
     Dosage: UNK
     Route: 065

REACTIONS (32)
  - Thrombocytopenia [Unknown]
  - Acute respiratory failure [Unknown]
  - Scleroderma [Unknown]
  - Cataract [Unknown]
  - Erysipelas [Unknown]
  - Pelvic venous thrombosis [Unknown]
  - Infarction [Unknown]
  - Diverticulitis [Unknown]
  - Jaundice cholestatic [Unknown]
  - Liver injury [Unknown]
  - Craniofacial fracture [Unknown]
  - Bronchopulmonary aspergillosis [Unknown]
  - Poikiloderma [Unknown]
  - Hyperglycaemia [Unknown]
  - Loss of personal independence in daily activities [Unknown]
  - Diarrhoea [Unknown]
  - Nausea [Unknown]
  - Vomiting [Unknown]
  - Blister [Unknown]
  - Infection [Unknown]
  - Venous thrombosis [Unknown]
  - Myopathy [Unknown]
  - Secondary adrenocortical insufficiency [Unknown]
  - Rash erythematous [Unknown]
  - Fall [Unknown]
  - Muscular weakness [Unknown]
  - Wound haemorrhage [Unknown]
  - Arteriosclerosis [Unknown]
  - Visual field defect [Unknown]
  - Duodenitis [Unknown]
  - Contusion [Unknown]
  - Cholelithiasis [Unknown]

NARRATIVE: CASE EVENT DATE: 20160601
